FAERS Safety Report 8058886-8 (Version None)
Quarter: 2012Q1

REPORT INFORMATION
  Report Type: 
  Country: None (occurrence: None)
  Receive Date: 20120119
  Receipt Date: 20120119
  Transmission Date: 20120608
  Serious: Yes (Hospitalization)
  Sender: FDA-Public Use
  Company Number: None

PATIENT
  Age: 65 Year
  Sex: Male
  Weight: 82 kg

DRUGS (2)
  1. BACTRIM [Suspect]
     Dosage: PO
     Route: 048
  2. ACETAMINOPHEN [Concomitant]

REACTIONS (4)
  - HEPATITIS ACUTE [None]
  - LEUKOPENIA [None]
  - TOXICITY TO VARIOUS AGENTS [None]
  - RENAL FAILURE ACUTE [None]
